FAERS Safety Report 6356750-3 (Version None)
Quarter: 2009Q3

REPORT INFORMATION
  Report Type: 
  Country: None (occurrence: None)
  Receive Date: 20090915
  Receipt Date: 20090911
  Transmission Date: 20100115
  Serious: Yes (Hospitalization)
  Sender: FDA-Public Use
  Company Number: US-BRISTOL-MYERS SQUIBB COMPANY-14776413

PATIENT
  Age: 62 Year
  Sex: Female

DRUGS (9)
  1. ABILIFY [Suspect]
     Indication: BIPOLAR DISORDER
     Dosage: INITIALLY 15MG INCREASED TO 20MG
     Dates: end: 20090908
  2. LITHIUM CARBONATE [Suspect]
     Indication: BIPOLAR DISORDER
     Dates: end: 20090908
  3. FUROSEMIDE [Concomitant]
  4. AMOXICILLIN [Concomitant]
  5. ALBUTEROL [Concomitant]
     Route: 055
  6. SINGULAIR [Concomitant]
  7. ADVAIR HFA [Concomitant]
     Route: 055
  8. OXYGEN [Concomitant]
  9. SEROQUEL [Concomitant]
     Indication: BIPOLAR DISORDER

REACTIONS (2)
  - ACUTE RESPIRATORY FAILURE [None]
  - LIVER FUNCTION TEST ABNORMAL [None]
